FAERS Safety Report 5018889-4 (Version None)
Quarter: 2006Q2

REPORT INFORMATION
  Report Type: 
  Country: None (occurrence: None)
  Receive Date: 20060531
  Receipt Date: 20060518
  Transmission Date: 20061013
  Serious: Yes (Other)
  Sender: FDA-Public Use
  Company Number: 2006057920

PATIENT
  Sex: Male

DRUGS (5)
  1. CAVERJECT POWDER, STERILE (APROSTADIL) [Suspect]
     Indication: ERECTILE DYSFUNCTION
     Dates: start: 19990101
  2. ALEVE [Suspect]
     Indication: NECK PAIN
     Dates: start: 20030101
  3. CELEBREX [Concomitant]
  4. VIOXX [Concomitant]
  5. BEXTRA [Concomitant]

REACTIONS (6)
  - BLOOD CHOLESTEROL INCREASED [None]
  - BODY HEIGHT DECREASED [None]
  - DRUG INEFFECTIVE [None]
  - HYPERTENSION [None]
  - NECK PAIN [None]
  - PROSTATE CANCER RECURRENT [None]
